FAERS Safety Report 7312632-1 (Version None)
Quarter: 2011Q1

REPORT INFORMATION
  Report Type: 
  Country: None (occurrence: None)
  Receive Date: 20110224
  Receipt Date: 20110128
  Transmission Date: 20110831
  Serious: No
  Sender: FDA-Public Use
  Company Number: US-BAYER-2011-013629

PATIENT
  Sex: Female
  Weight: 68 kg

DRUGS (5)
  1. SYNTHROID [Concomitant]
  2. LIPITOR [Concomitant]
  3. ALEVE (CAPLET) [Suspect]
     Indication: BACK PAIN
     Dosage: UNK UNK, PRN
     Route: 048
     Dates: start: 20110126, end: 20110126
  4. EXFORGE [Concomitant]
  5. LANTUS [Concomitant]

REACTIONS (1)
  - HYPERHIDROSIS [None]
